FAERS Safety Report 10733321 (Version 2)
Quarter: 2015Q2

REPORT INFORMATION
  Report Type: Spontaneous
  Country: US (occurrence: US)
  Receive Date: 20150123
  Receipt Date: 20150422
  Transmission Date: 20150821
  Serious: Yes (Other)
  Sender: FDA-Public Use
  Company Number: US-BAYER-2015-005279

PATIENT
  Age: 27 Year
  Sex: Female

DRUGS (2)
  1. MIRENA [Suspect]
     Active Substance: LEVONORGESTREL
     Indication: MENORRHAGIA
     Dosage: 20 MCG/24HR, CONT
     Route: 015
     Dates: start: 20141217
  2. MIRENA [Suspect]
     Active Substance: LEVONORGESTREL
     Indication: CONTRACEPTION

REACTIONS (9)
  - Device dislocation [None]
  - Post procedural haemorrhage [None]
  - Device dislocation [None]
  - Ovarian cyst ruptured [None]
  - Abdominal pain lower [None]
  - Breast tenderness [None]
  - Nausea [None]
  - Post procedural discomfort [None]
  - Decreased appetite [None]

NARRATIVE: CASE EVENT DATE: 201412
